FAERS Safety Report 7283822-1 (Version None)
Quarter: 2011Q1

REPORT INFORMATION
  Report Type: 
  Country: None (occurrence: None)
  Receive Date: 20110209
  Receipt Date: 20110203
  Transmission Date: 20110831
  Serious: Yes (Life-Threatening)
  Sender: FDA-Public Use
  Company Number: JP-PFIZER INC-2009185828

PATIENT
  Age: 64 Year
  Sex: Male
  Weight: 45 kg

DRUGS (13)
  1. SENNARIDE [Concomitant]
     Dosage: 24 MG, 1X/DAY
     Route: 048
  2. BORRAZA-G [Concomitant]
     Dosage: UNK
  3. MUCOSTA [Concomitant]
     Indication: PROPHYLAXIS
     Dosage: 100 MG, 3X/DAY
     Route: 048
     Dates: start: 20090827
  4. RIFABUTIN [Suspect]
     Dosage: 300 MG, 1X/DAY
     Route: 048
     Dates: start: 20090715, end: 20091023
  5. NITOROL R [Concomitant]
     Dosage: 20 MG, 2X/DAY
     Route: 048
  6. RIFABUTIN [Suspect]
     Indication: TUBERCULOSIS
     Dosage: 150 MG, 1X/DAY
     Route: 048
     Dates: start: 20090106, end: 20090714
  7. ATARAX [Concomitant]
     Dosage: 25 MG, 1X/DAY
     Route: 048
     Dates: start: 20090423
  8. ZADITEN [Concomitant]
     Dosage: UNK
  9. GARENOXACIN MESILATE [Suspect]
     Indication: TUBERCULOSIS
     Dosage: 200 MG, 1X/DAY
     Route: 048
     Dates: start: 20090918, end: 20091023
  10. CLARITH [Concomitant]
     Indication: TUBERCULOSIS
     Dosage: 400 MG, 2X/DAY
     Route: 048
  11. FERRUM ^GREEN CROSS^ [Concomitant]
     Dosage: 305 MG, 1X/DAY
     Route: 048
  12. LOXONIN [Concomitant]
     Indication: ARTHRALGIA
     Dosage: 60 MG, 3X/DAY
     Route: 048
     Dates: start: 20090827
  13. HALCION [Concomitant]
     Dosage: 0.25 MG, 1X/DAY
     Route: 048

REACTIONS (3)
  - PNEUMONIA [None]
  - WHITE BLOOD CELL COUNT DECREASED [None]
  - PLATELET COUNT DECREASED [None]
